FAERS Safety Report 10132076 (Version 1)
Quarter: 2014Q2

REPORT INFORMATION
  Report Type: Spontaneous
  Country: US (occurrence: US)
  Receive Date: 20140428
  Receipt Date: 20140428
  Transmission Date: 20141212
  Serious: Yes (Hospitalization)
  Sender: FDA-Public Use
  Company Number: US-PFIZER INC-2014116618

PATIENT
  Age: 68 Year
  Sex: Male
  Weight: 87.53 kg

DRUGS (2)
  1. NICOTROL INHALER [Suspect]
     Indication: SMOKING CESSATION THERAPY
     Dosage: 4 MG, 5X/DAY
     Route: 045
     Dates: start: 201312, end: 20140401
  2. LIPITOR [Concomitant]
     Dosage: 10 MG, 1X/DAY

REACTIONS (1)
  - Pneumonia [Recovering/Resolving]
